FAERS Safety Report 8552855-7 (Version None)
Quarter: 2012Q3

REPORT INFORMATION
  Report Type: 
  Country: None (occurrence: None)
  Receive Date: 20120731
  Receipt Date: 20120726
  Transmission Date: 20120928
  Serious: Yes (Hospitalization, Disabling)
  Sender: FDA-Public Use
  Company Number: PHHY2011JP77364

PATIENT
  Age: 59 Year
  Sex: Female

DRUGS (4)
  1. VINCRISTINE SULFATE [Concomitant]
     Indication: MULTIPLE MYELOMA
  2. DEXAMETHASONE [Concomitant]
     Indication: MULTIPLE MYELOMA
  3. DOXORUBICIN HYDROCHLORIDE [Concomitant]
     Indication: MULTIPLE MYELOMA
  4. ZOMETA [Suspect]
     Indication: MULTIPLE MYELOMA
     Dosage: 3 MG, QMO
     Dates: start: 20060424, end: 20100601

REACTIONS (8)
  - PERICORONITIS [None]
  - PERIODONTITIS [None]
  - STOMATITIS [None]
  - PANCYTOPENIA [None]
  - WHITE BLOOD CELL COUNT DECREASED [None]
  - DENTAL CARIES [None]
  - HAEMOGLOBIN DECREASED [None]
  - MUCOSAL INFLAMMATION [None]
